FAERS Safety Report 24464237 (Version 1)
Quarter: 2024Q4

REPORT INFORMATION
  Report Type: Spontaneous
  Country: US (occurrence: US)
  Receive Date: 20241018
  Receipt Date: 20241018
  Transmission Date: 20250115
  Serious: No
  Sender: ROCHE
  Company Number: US-ROCHE-3492268

PATIENT
  Age: 69 Year
  Sex: Female

DRUGS (6)
  1. XOLAIR [Suspect]
     Active Substance: OMALIZUMAB
     Indication: Chronic spontaneous urticaria
     Dosage: 2X 150 MG
     Route: 065
  2. ALLEGRA [Concomitant]
     Active Substance: FEXOFENADINE HYDROCHLORIDE
     Dosage: FREQUENCY TEXT:DAILY
  3. FAMOTIDINE [Concomitant]
     Active Substance: FAMOTIDINE
     Dosage: FREQUENCY TEXT:DAILY
  4. INSULIN NOS [Concomitant]
     Active Substance: INSULIN NOS
     Dosage: FREQUENCY TEXT:DAILY
  5. ATORVASTATIN [Concomitant]
     Active Substance: ATORVASTATIN
     Dosage: FREQUENCY TEXT:DAILY
  6. XYZAL [Concomitant]
     Active Substance: LEVOCETIRIZINE DIHYDROCHLORIDE
     Dosage: FREQUENCY TEXT:DAILY

REACTIONS (1)
  - Urticaria [Unknown]
